FAERS Safety Report 18770725 (Version 2)
Quarter: 2021Q1

REPORT INFORMATION
  Report Type: Spontaneous
  Country: DE (occurrence: DE)
  Receive Date: 20210121
  Receipt Date: 20210204
  Transmission Date: 20210419
  Serious: Yes (Other)
  Sender: FDA-Public Use
  Company Number: DE-NOVOPROD-779870

PATIENT
  Age: 43 Year
  Sex: Male
  Weight: 112 kg

DRUGS (2)
  1. ESPEROCT [Suspect]
     Active Substance: ANTIHEMOPHILIC FACTOR, HUMAN RECOMBINANT
     Indication: FACTOR VIII DEFICIENCY
     Dosage: ESPEROCT 4000 I.E. EVERY 2ND DAY
     Route: 065
     Dates: start: 20201203
  2. ESPEROCT [Suspect]
     Active Substance: ANTIHEMOPHILIC FACTOR, HUMAN RECOMBINANT
     Indication: PROPHYLAXIS
     Dosage: 6000 IU
     Route: 065
     Dates: start: 20201214, end: 20201214

REACTIONS (3)
  - Drug specific antibody present [Unknown]
  - Haemorrhage [Unknown]
  - Therapy non-responder [Unknown]
